FAERS Safety Report 21165323 (Version 1)
Quarter: 2022Q3

REPORT INFORMATION
  Report Type: Other
  Country: US (occurrence: None)
  Receive Date: 20220803
  Receipt Date: 20220803
  Transmission Date: 20221026
  Serious: Yes (Hospitalization, Other)
  Sender: FDA-Public Use
  Company Number: US-ROCHE-2639760

PATIENT
  Age: 63 Year
  Sex: Male
  Weight: 76.272 kg

DRUGS (24)
  1. OCREVUS [Suspect]
     Active Substance: OCRELIZUMAB
     Indication: Relapsing multiple sclerosis
     Route: 042
     Dates: start: 2019, end: 2019
  2. OCREVUS [Suspect]
     Active Substance: OCRELIZUMAB
     Indication: Deafness
     Route: 042
  3. OCREVUS [Suspect]
     Active Substance: OCRELIZUMAB
     Indication: Ataxia
     Dosage: ONLY RECEIVED ONE INFUSION
     Route: 042
     Dates: start: 201805, end: 201805
  4. OCREVUS [Suspect]
     Active Substance: OCRELIZUMAB
     Indication: Secondary progressive multiple sclerosis
  5. KLONOPIN [Suspect]
     Active Substance: CLONAZEPAM
     Indication: Product used for unknown indication
     Route: 065
  6. VALIUM [Suspect]
     Active Substance: DIAZEPAM
     Indication: Dyskinesia
     Route: 048
  7. VALIUM [Suspect]
     Active Substance: DIAZEPAM
     Route: 048
  8. ASPIRIN [Concomitant]
     Active Substance: ASPIRIN
  9. ARICEPT [Concomitant]
     Active Substance: DONEPEZIL HYDROCHLORIDE
  10. LEXAPRO [Concomitant]
     Active Substance: ESCITALOPRAM OXALATE
  11. NEURONTIN [Concomitant]
     Active Substance: GABAPENTIN
  12. AVALIDE [Concomitant]
     Active Substance: HYDROCHLOROTHIAZIDE\IRBESARTAN
     Dosage: 150-12.5 MG PER TABLET
  13. ZOLOFT [Concomitant]
     Active Substance: SERTRALINE HYDROCHLORIDE
  14. PRILOSEC [Concomitant]
     Active Substance: OMEPRAZOLE MAGNESIUM
  15. K TAB [Concomitant]
  16. ZOCOR [Concomitant]
     Active Substance: SIMVASTATIN
  17. FLOMAX [Concomitant]
     Active Substance: TAMSULOSIN HYDROCHLORIDE
  18. BACTROBAN [Concomitant]
     Active Substance: MUPIROCIN\MUPIROCIN CALCIUM
  19. IRBESARTAN [Concomitant]
     Active Substance: IRBESARTAN
     Indication: Hypertension
     Dosage: 300-12.5 MG
     Route: 048
  20. POTASSIUM CHLORIDE [Concomitant]
     Active Substance: POTASSIUM CHLORIDE
     Route: 048
  21. OMEPRAZOLE [Concomitant]
     Active Substance: OMEPRAZOLE
  22. SERTRALINE [Concomitant]
     Active Substance: SERTRALINE HYDROCHLORIDE
     Route: 048
  23. TAMSULOSIN [Concomitant]
     Active Substance: TAMSULOSIN
  24. GABAPENTIN [Concomitant]
     Active Substance: GABAPENTIN

REACTIONS (8)
  - Hip fracture [Recovered/Resolved]
  - Off label use [Unknown]
  - Multiple sclerosis [Unknown]
  - Fall [Unknown]
  - Nystagmus [Unknown]
  - Choking [Not Recovered/Not Resolved]
  - Gait disturbance [Not Recovered/Not Resolved]
  - Urinary tract infection [Not Recovered/Not Resolved]

NARRATIVE: CASE EVENT DATE: 20200330
